FAERS Safety Report 21401066 (Version 2)
Quarter: 2022Q4

REPORT INFORMATION
  Report Type: Report from Study
  Country: US (occurrence: US)
  Receive Date: 20221003
  Receipt Date: 20221104
  Transmission Date: 20230112
  Serious: No
  Sender: FDA-Public Use
  Company Number: US-ABBVIE-4134401

PATIENT
  Age: 83 Year
  Sex: Female
  Weight: 92.986 kg

DRUGS (4)
  1. SYNTHROID [Suspect]
     Active Substance: LEVOTHYROXINE SODIUM
     Indication: Thyroid disorder
     Dosage: FORM STRENGTH: 25 MICROGRAM
     Route: 048
     Dates: start: 20220905, end: 20220927
  2. Covid19 vaccine [Concomitant]
     Indication: COVID-19 immunisation
     Dosage: 3 SHOTS OF UNSPECIFIED COVID19 VACCINE
     Route: 030
     Dates: start: 2021, end: 2021
  3. Covid19 vaccine [Concomitant]
     Indication: COVID-19 immunisation
     Dosage: 3 SHOTS OF UNSPECIFIED COVID19 VACCINE
     Route: 030
     Dates: start: 2021, end: 2021
  4. BENADRYL [Concomitant]
     Active Substance: DIPHENHYDRAMINE HYDROCHLORIDE
     Indication: Hypersensitivity
     Dosage: AS NEEDED

REACTIONS (9)
  - Throat tightness [Not Recovered/Not Resolved]
  - Sensation of foreign body [Not Recovered/Not Resolved]
  - Dysphagia [Not Recovered/Not Resolved]
  - Pruritus [Not Recovered/Not Resolved]
  - Decreased appetite [Not Recovered/Not Resolved]
  - Weight increased [Not Recovered/Not Resolved]
  - Dysphonia [Not Recovered/Not Resolved]
  - Nausea [Not Recovered/Not Resolved]
  - Skin haemorrhage [Not Recovered/Not Resolved]

NARRATIVE: CASE EVENT DATE: 20220901
